FAERS Safety Report 9467354 (Version 2)
Quarter: 2013Q3

REPORT INFORMATION
  Report Type: Spontaneous
  Country: IN (occurrence: IN)
  Receive Date: 20130821
  Receipt Date: 20130903
  Transmission Date: 20140515
  Serious: Yes (Death)
  Sender: FDA-Public Use
  Company Number: IN-BRISTOL-MYERS SQUIBB COMPANY-19203421

PATIENT
  Age: 55 Year
  Sex: Female
  Weight: 60 kg

DRUGS (5)
  1. ELIQUIS [Suspect]
     Indication: THROMBOSIS PROPHYLAXIS
     Dosage: TAB
     Route: 048
     Dates: start: 20130720, end: 20130724
  2. ELIQUIS [Suspect]
     Indication: KNEE ARTHROPLASTY
     Dosage: TAB
     Route: 048
     Dates: start: 20130720, end: 20130724
  3. AMIKACIN [Concomitant]
  4. CALCIUM [Concomitant]
  5. CEFOPERAZONE SODIUM + SULBACTAM SODIUM [Concomitant]
     Route: 042

REACTIONS (4)
  - Jaundice acholuric [Fatal]
  - Shock [Fatal]
  - Blood bilirubin increased [Fatal]
  - Coagulopathy [Fatal]
